FAERS Safety Report 14327847 (Version 2)
Quarter: 2018Q1

REPORT INFORMATION
  Report Type: Spontaneous
  Country: SE (occurrence: SE)
  Receive Date: 20171227
  Receipt Date: 20180206
  Transmission Date: 20180509
  Serious: Yes (Life-Threatening)
  Sender: FDA-Public Use
  Company Number: SE-AMGEN-SWESP2017190359

PATIENT
  Age: 23 Year
  Sex: Female
  Weight: 93 kg

DRUGS (21)
  1. SYMBICORT [Concomitant]
     Active Substance: BUDESONIDE\FORMOTEROL FUMARATE DIHYDRATE
  2. SAROTEN [Concomitant]
     Active Substance: AMITRIPTYLINE
  3. ESOMEPRAZOLE [Concomitant]
     Active Substance: ESOMEPRAZOLE
  4. LYRICA [Concomitant]
     Active Substance: PREGABALIN
  5. STESOLID [Concomitant]
     Active Substance: DIAZEPAM
  6. ACETYLCYSTEINE. [Concomitant]
     Active Substance: ACETYLCYSTEINE
  7. AMLODIPINE [Concomitant]
     Active Substance: AMLODIPINE BESYLATE
  8. OXYNORM [Concomitant]
     Active Substance: OXYCODONE HYDROCHLORIDE
  9. KALCIPOS-D [Concomitant]
     Active Substance: CALCIUM CARBONATE\CHOLECALCIFEROL
  10. OXIS TURBOHALER [Concomitant]
  11. PROLIA [Suspect]
     Active Substance: DENOSUMAB
     Indication: OSTEOPOROSIS
     Dosage: 60 MG, UNK
     Route: 058
     Dates: start: 20171102, end: 20171102
  12. ZOPICLONE [Concomitant]
     Active Substance: ZOPICLONE
  13. SERTRALINE [Concomitant]
     Active Substance: SERTRALINE HYDROCHLORIDE
  14. BETAPRED [Concomitant]
     Active Substance: BETAMETHASONE SODIUM PHOSPHATE
  15. PROPAVAN [Concomitant]
     Active Substance: PROPIOMAZINE
  16. MIRTAZAPINE. [Concomitant]
     Active Substance: MIRTAZAPINE
  17. HYDROCORTISONE. [Concomitant]
     Active Substance: HYDROCORTISONE
  18. ALVEDON [Concomitant]
     Active Substance: ACETAMINOPHEN
  19. GAMMANORM [Concomitant]
     Active Substance: HUMAN IMMUNOGLOBULIN G
  20. MONTELUKAST [Concomitant]
     Active Substance: MONTELUKAST SODIUM
  21. STELARA [Concomitant]
     Active Substance: USTEKINUMAB

REACTIONS (1)
  - Acute respiratory distress syndrome [Recovered/Resolved]

NARRATIVE: CASE EVENT DATE: 20171118
